FAERS Safety Report 24418774 (Version 6)
Quarter: 2025Q1

REPORT INFORMATION
  Report Type: Spontaneous
  Country: FR (occurrence: FR)
  Receive Date: 20241009
  Receipt Date: 20250210
  Transmission Date: 20250409
  Serious: Yes (Death)
  Sender: JOHNSON AND JOHNSON
  Company Number: FR-AFSSAPS-NC2024001217

PATIENT
  Age: 96 Year
  Sex: Female
  Weight: 53.6 kg

DRUGS (10)
  1. RISPERDAL [Suspect]
     Active Substance: RISPERIDONE
     Indication: Mental disorder
     Route: 048
     Dates: start: 20240127, end: 20240319
  2. RISPERDAL [Suspect]
     Active Substance: RISPERIDONE
     Route: 048
  3. DALBAVANCIN HYDROCHLORIDE [Suspect]
     Active Substance: DALBAVANCIN HYDROCHLORIDE
     Indication: Device related infection
     Route: 042
     Dates: start: 20240131, end: 20240131
  4. DALBAVANCIN HYDROCHLORIDE [Suspect]
     Active Substance: DALBAVANCIN HYDROCHLORIDE
     Indication: Arthritis infective
     Route: 042
     Dates: start: 20240306, end: 20240306
  5. DALBAVANCIN HYDROCHLORIDE [Suspect]
     Active Substance: DALBAVANCIN HYDROCHLORIDE
     Indication: Product used for unknown indication
  6. RIFAMPIN [Suspect]
     Active Substance: RIFAMPIN
     Indication: Device related infection
     Dosage: 3000 MG
     Route: 048
     Dates: start: 20240127, end: 20240319
  7. RIFAMPIN [Suspect]
     Active Substance: RIFAMPIN
     Indication: Arthritis infective
  8. NEBIVOLOL [Suspect]
     Active Substance: NEBIVOLOL
     Indication: Hypertension
     Dosage: 2.5 MILLIGRAM
     Route: 048
     Dates: start: 20231121, end: 20240319
  9. DESLORATADINE [Suspect]
     Active Substance: DESLORATADINE
     Indication: Product used for unknown indication
     Route: 048
     Dates: start: 20231123, end: 20240319
  10. ESCITALOPRAM OXALATE [Suspect]
     Active Substance: ESCITALOPRAM OXALATE
     Indication: Mental disorder
     Dosage: 10 MILLIGRAM
     Route: 048
     Dates: start: 20240127, end: 20240319

REACTIONS (3)
  - Sudden death [Fatal]
  - Cardiac arrest [Fatal]
  - Product use in unapproved indication [Fatal]

NARRATIVE: CASE EVENT DATE: 20240319
